FAERS Safety Report 8231757-X (Version None)
Quarter: 2012Q1

REPORT INFORMATION
  Report Type: 
  Country: None (occurrence: None)
  Receive Date: 20120323
  Receipt Date: 20120316
  Transmission Date: 20120608
  Serious: Yes (Death, Other)
  Sender: FDA-Public Use
  Company Number: PHHY2011JP103180

PATIENT
  Age: 45 Year
  Sex: Female

DRUGS (2)
  1. PREDNISOLONE [Concomitant]
     Indication: CORD BLOOD TRANSPLANT THERAPY
     Dosage: UNK UKN, UNK
  2. NEORAL [Suspect]
     Indication: CORD BLOOD TRANSPLANT THERAPY

REACTIONS (13)
  - WHITE BLOOD CELL COUNT DECREASED [None]
  - ERYTHEMA [None]
  - RASH [None]
  - SKIN NECROSIS [None]
  - MYOCARDIAL INFARCTION [None]
  - PANCYTOPENIA [None]
  - BLOOD BETA-D-GLUCAN INCREASED [None]
  - SKIN MASS [None]
  - FUSARIUM INFECTION [None]
  - PYREXIA [None]
  - PAIN OF SKIN [None]
  - BLISTER [None]
  - SEPTIC SHOCK [None]
